FAERS Safety Report 5346196-9 (Version None)
Quarter: 2007Q2

REPORT INFORMATION
  Report Type: 
  Country: None (occurrence: None)
  Receive Date: 20070605
  Receipt Date: 20070601
  Transmission Date: 20071010
  Serious: Yes (Death)
  Sender: FDA-Public Use
  Company Number: ES-SANOFI-SYNTHELABO-F01200700707

PATIENT
  Sex: Male
  Weight: 72 kg

DRUGS (6)
  1. FUROSEMIDE [Concomitant]
     Indication: HYPERTENSION
     Route: 048
  2. ENALAPRIL MALEATE [Concomitant]
     Indication: HYPERTENSION
     Route: 048
  3. RADIOTHERAPY [Suspect]
     Indication: OESOPHAGEAL CARCINOMA
     Dates: start: 20070516, end: 20070522
  4. FLUOROURACIL [Suspect]
     Route: 042
     Dates: start: 20070516, end: 20070519
  5. ELOXATIN [Suspect]
     Indication: OESOPHAGEAL CARCINOMA
     Route: 042
     Dates: start: 20070516, end: 20070516
  6. CISPLATIN [Suspect]
     Route: 042
     Dates: start: 20070516, end: 20070516

REACTIONS (1)
  - SUDDEN DEATH [None]
